FAERS Safety Report 22064739 (Version 1)
Quarter: 2023Q1

REPORT INFORMATION
  Report Type: Report from Study
  Country: US (occurrence: US)
  Receive Date: 20230306
  Receipt Date: 20230306
  Transmission Date: 20230417
  Serious: Yes (Hospitalization, Other)
  Sender: FDA-Public Use
  Company Number: US-JNJFOC-20210842919

PATIENT
  Age: 76 Year
  Sex: Male
  Weight: 64.4 kg

DRUGS (4)
  1. DARATUMUMAB [Suspect]
     Active Substance: DARATUMUMAB
     Indication: Plasma cell myeloma
     Dosage: CYCLE7 DAY-15 ON 16-AUG-2021
     Dates: start: 20210118
  2. BORTEZOMIB [Suspect]
     Active Substance: BORTEZOMIB
     Indication: Plasma cell myeloma
     Dosage: D1, D8, D15 AND D22. DAY-15 OCCURRED ON 16-AUG-2021
     Dates: start: 20210802
  3. LENALIDOMIDE [Suspect]
     Active Substance: LENALIDOMIDE
     Indication: Plasma cell myeloma
     Dosage: D-1 TO D12
     Route: 048
     Dates: start: 20210118
  4. DEXAMETHASONE [Concomitant]
     Active Substance: DEXAMETHASONE
     Indication: Plasma cell myeloma
     Dosage: DAY-1, D8,D15 AND D22
     Dates: start: 20210118

REACTIONS (2)
  - Lymphocyte count decreased [Recovered/Resolved]
  - Dehydration [Recovered/Resolved]

NARRATIVE: CASE EVENT DATE: 20210816
